FAERS Safety Report 5366535-2 (Version None)
Quarter: 2007Q2

REPORT INFORMATION
  Report Type: 
  Country: None (occurrence: None)
  Receive Date: 20070622
  Receipt Date: 20070611
  Transmission Date: 20071010
  Serious: Yes (Other)
  Sender: FDA-Public Use
  Company Number: CA-PFIZER INC-2007048463

PATIENT
  Age: 50 Year
  Sex: Male

DRUGS (5)
  1. ACCUPRIL [Suspect]
     Indication: BLOOD PRESSURE
     Route: 048
  2. NOVOHYDRAZIDE [Concomitant]
  3. ASPIRIN [Concomitant]
  4. MULTIVITAMIN [Concomitant]
  5. REACTINE EXTRA STRENGTH [Concomitant]
     Indication: HYPERSENSITIVITY

REACTIONS (6)
  - BLOOD PRESSURE INADEQUATELY CONTROLLED [None]
  - DIZZINESS [None]
  - DYSGEUSIA [None]
  - HYPOAESTHESIA FACIAL [None]
  - NASAL CONGESTION [None]
  - VISUAL ACUITY REDUCED [None]
